FAERS Safety Report 10163012 (Version 1)
Quarter: 2014Q2

REPORT INFORMATION
  Report Type: Spontaneous
  Country: GB (occurrence: GB)
  Receive Date: 20140509
  Receipt Date: 20140509
  Transmission Date: 20141212
  Serious: Yes (Other)
  Sender: FDA-Public Use
  Company Number: PHHY2014GB055359

PATIENT
  Age: 26 Year
  Sex: Female
  Weight: 59.87 kg

DRUGS (2)
  1. CLARITHROMYCIN [Suspect]
     Indication: LUNG INFECTION
     Dosage: 500 MG, UNK
     Route: 048
     Dates: start: 20140211
  2. YASMIN [Concomitant]

REACTIONS (8)
  - Myalgia [Not Recovered/Not Resolved]
  - Dysgeusia [Not Recovered/Not Resolved]
  - Nausea [Not Recovered/Not Resolved]
  - Diarrhoea [Not Recovered/Not Resolved]
  - Insomnia [Not Recovered/Not Resolved]
  - Asthenia [Not Recovered/Not Resolved]
  - Dyspnoea [Not Recovered/Not Resolved]
  - Hyperhidrosis [Not Recovered/Not Resolved]
